FAERS Safety Report 5144163-1 (Version None)
Quarter: 2006Q4

REPORT INFORMATION
  Report Type: 
  Country: None (occurrence: None)
  Receive Date: 20061106
  Receipt Date: 20061026
  Transmission Date: 20070319
  Serious: Yes (Other)
  Sender: FDA-Public Use
  Company Number: GB-MERCK-0610GBR00512

PATIENT
  Age: 69 Year
  Sex: Female

DRUGS (11)
  1. FOSAMAX [Suspect]
     Route: 048
     Dates: start: 20060301
  2. CLODRONATE DISODIUM [Suspect]
     Route: 048
     Dates: start: 20060201
  3. ATORVASTATIN CALCIUM [Concomitant]
     Route: 048
  4. DICLOFENAC [Concomitant]
     Route: 048
  5. DIGOXIN [Concomitant]
     Route: 048
  6. FUROSEMIDE [Concomitant]
     Route: 048
  7. OMEPRAZOLE [Concomitant]
     Route: 048
  8. PREDNISOLONE [Concomitant]
     Route: 048
  9. QUINAPRIL HYDROCHLORIDE [Concomitant]
     Route: 048
  10. QUININE [Concomitant]
     Route: 048
  11. WARFARIN SODIUM [Concomitant]
     Route: 048

REACTIONS (2)
  - IMPAIRED HEALING [None]
  - OSTEONECROSIS [None]
